FAERS Safety Report 4615683-0 (Version None)
Quarter: 2005Q1

REPORT INFORMATION
  Report Type: 
  Country: None (occurrence: None)
  Receive Date: 20050317
  Receipt Date: 20050308
  Transmission Date: 20050727
  Serious: Yes (Other)
  Sender: FDA-Public Use
  Company Number: 200510987BCC

PATIENT
  Age: 77 Year
  Sex: Female

DRUGS (2)
  1. REGIMEN BAYER ASPIRIN (ACETYSALICYLIC ACID) [Suspect]
     Indication: MYOCARDIAL INFARCTION
     Dosage: 81 MG, ORAL
     Route: 048
  2. REGIMEN BAYER ASPIRIN (ACETYSALICYLIC ACID) [Suspect]
     Indication: PROPHYLAXIS
     Dosage: 81 MG, ORAL
     Route: 048

REACTIONS (1)
  - EYE HAEMORRHAGE [None]
